FAERS Safety Report 21603499 (Version 1)
Quarter: 2022Q4

REPORT INFORMATION
  Report Type: Spontaneous
  Country: US (occurrence: US)
  Receive Date: 20221116
  Receipt Date: 20221116
  Transmission Date: 20230113
  Serious: No
  Sender: FDA-Public Use
  Company Number: US-OptiNose US, Inc-2022OPT000163

PATIENT
  Sex: Female

DRUGS (1)
  1. XHANCE [Suspect]
     Active Substance: FLUTICASONE PROPIONATE
     Indication: Product used for unknown indication
     Route: 045

REACTIONS (5)
  - Drug withdrawal headache [Unknown]
  - Eye pruritus [Unknown]
  - Nervousness [Unknown]
  - Nasal discomfort [Unknown]
  - Headache [Unknown]
